FAERS Safety Report 10020970 (Version 1)
Quarter: 2014Q1

REPORT INFORMATION
  Report Type: Spontaneous
  Country: US (occurrence: US)
  Receive Date: 20140319
  Receipt Date: 20140319
  Transmission Date: 20141002
  Serious: Yes (Other)
  Sender: FDA-Public Use
  Company Number: US-BRISTOL-MYERS SQUIBB COMPANY-20417663

PATIENT
  Sex: 0

DRUGS (1)
  1. ABILIFY TABS [Suspect]

REACTIONS (3)
  - Anxiety [Unknown]
  - Delusion [Unknown]
  - Wrong technique in drug usage process [Unknown]
